FAERS Safety Report 21379635 (Version 1)
Quarter: 2022Q3

REPORT INFORMATION
  Report Type: Spontaneous
  Country: BR (occurrence: BR)
  Receive Date: 20220927
  Receipt Date: 20220927
  Transmission Date: 20221027
  Serious: Yes (Other)
  Sender: FDA-Public Use
  Company Number: BR-SUN PHARMACEUTICAL INDUSTRIES LTD-2022R1-355627

PATIENT
  Age: 75 Year
  Sex: Male

DRUGS (1)
  1. MEMANTINE [Suspect]
     Active Substance: MEMANTINE
     Indication: Dementia Alzheimer^s type
     Dosage: 10 MILLIGRAM, DAILY
     Route: 048

REACTIONS (5)
  - Disease progression [Unknown]
  - Dizziness [Unknown]
  - Fall [Unknown]
  - Headache [Unknown]
  - Constipation [Unknown]
